FAERS Safety Report 15083009 (Version 2)
Quarter: 2018Q3

REPORT INFORMATION
  Report Type: Spontaneous
  Country: US (occurrence: US)
  Receive Date: 20180628
  Receipt Date: 20180702
  Transmission Date: 20181010
  Serious: Yes (Other)
  Sender: FDA-Public Use
  Company Number: US-PFIZER INC-2017270235

PATIENT
  Age: 43 Year
  Sex: Male
  Weight: 124 kg

DRUGS (17)
  1. OXYGEN. [Concomitant]
     Active Substance: OXYGEN
     Dosage: 10 L/ MIN OXYGEN
  2. GARLICIN CARDIO [Interacting]
     Active Substance: DIETARY SUPPLEMENT
     Dosage: HIGH DOSE; EACH TABLET CONTAINING 3200 MG OF ALLICIN
  3. INSULIN [Concomitant]
     Active Substance: INSULIN NOS
     Dosage: UNK
  4. OXYGEN. [Concomitant]
     Active Substance: OXYGEN
     Dosage: 20 L/MIN, UNK
  5. ACETYLSALICYLIC ACID [Concomitant]
     Active Substance: ASPIRIN
     Dosage: UNK
  6. MYCOPHENOLATE MOFETIL. [Concomitant]
     Active Substance: MYCOPHENOLATE MOFETIL
     Indication: IMMUNOSUPPRESSANT DRUG THERAPY
     Dosage: 1000 MG, 2X/DAY (EVERY 12 HOURS)
  7. TACROLIMUS. [Suspect]
     Active Substance: TACROLIMUS
     Indication: IMMUNOSUPPRESSANT DRUG THERAPY
     Dosage: 5 MG, 2X/DAY
  8. GARLICIN CARDIO [Interacting]
     Active Substance: DIETARY SUPPLEMENT
     Indication: HEPATOPULMONARY SYNDROME
     Dosage: HIGH DOSE; EACH TABLET CONTAINING 3200 MG OF ALLICIN (THREE TIMES THE MANUFACTURER^S RECOMMENDED
  9. POLYSACCHARIDE IRON [Concomitant]
     Dosage: UNK
  10. PREDNISONE. [Concomitant]
     Active Substance: PREDNISONE
     Indication: IMMUNOSUPPRESSANT DRUG THERAPY
     Dosage: 5 MG, 1X/DAY
  11. TACROLIMUS. [Interacting]
     Active Substance: TACROLIMUS
     Dosage: 3 MG, 2X/DAY
  12. DOCUSATE SODIUM. [Concomitant]
     Active Substance: DOCUSATE SODIUM
     Dosage: UNK
  13. OXYGEN. [Concomitant]
     Active Substance: OXYGEN
     Dosage: 8 L HIGH?FLOW
  14. ERGOCALCIFEROL. [Concomitant]
     Active Substance: ERGOCALCIFEROL
     Dosage: UNK
  15. ATORVASTATIN [Concomitant]
     Active Substance: ATORVASTATIN
     Dosage: UNK
  16. OMEPRAZOLE. [Concomitant]
     Active Substance: OMEPRAZOLE
     Dosage: UNK
  17. OXYCODONE [Concomitant]
     Active Substance: OXYCODONE
     Dosage: UNK

REACTIONS (12)
  - Aspartate aminotransferase increased [None]
  - Blood alkaline phosphatase increased [None]
  - Blood bilirubin increased [None]
  - Hepatocellular injury [None]
  - Hepatotoxicity [Recovered/Resolved]
  - Prescribed overdose [Recovered/Resolved]
  - Alanine aminotransferase increased [None]
  - Cholestasis [None]
  - Drug-induced liver injury [Recovered/Resolved]
  - Herbal interaction [Recovered/Resolved]
  - Immunosuppressant drug level increased [Recovered/Resolved]
  - Drug interaction [Recovered/Resolved]
